FAERS Safety Report 19060341 (Version 3)
Quarter: 2021Q2

REPORT INFORMATION
  Report Type: Report from Study
  Country: None (occurrence: US)
  Receive Date: 20210326
  Receipt Date: 20210519
  Transmission Date: 20210717
  Serious: Yes (Other)
  Sender: FDA-Public Use
  Company Number: US-ABBVIE-21K-163-3828509-00

PATIENT
  Age: 74 Year
  Sex: Female

DRUGS (8)
  1. FOLIC ACID. [Concomitant]
     Active Substance: FOLIC ACID
     Indication: NAUSEA
  2. METHOTREXATE. [Concomitant]
     Active Substance: METHOTREXATE
     Indication: RHEUMATOID ARTHRITIS
  3. COVID?19 VACCINE NOS. [Concomitant]
     Active Substance: COVID-19 VACCINE NOS
     Dosage: PFIZER
     Route: 030
     Dates: start: 20210323, end: 20210323
  4. FLEXERIL [Concomitant]
     Active Substance: CYCLOBENZAPRINE HYDROCHLORIDE
     Indication: TENDONITIS
  5. COVID?19 VACCINE NOS. [Concomitant]
     Active Substance: COVID-19 VACCINE NOS
     Indication: COVID-19 IMMUNISATION
     Dosage: PFIZER
     Route: 030
     Dates: start: 20210309, end: 20210309
  6. HUMIRA [Suspect]
     Active Substance: ADALIMUMAB
     Indication: RHEUMATOID ARTHRITIS
     Route: 058
     Dates: start: 2005, end: 20210223
  7. HUMIRA [Suspect]
     Active Substance: ADALIMUMAB
     Route: 058
     Dates: start: 20210407, end: 20210407
  8. HUMIRA [Suspect]
     Active Substance: ADALIMUMAB
     Route: 058
     Dates: start: 2021

REACTIONS (20)
  - Decreased appetite [Not Recovered/Not Resolved]
  - Dyspnoea [Recovered/Resolved]
  - Malaise [Unknown]
  - Diarrhoea [Recovered/Resolved]
  - Bone pain [Recovered/Resolved]
  - Intentional product misuse [Recovered/Resolved]
  - Feeling abnormal [Not Recovered/Not Resolved]
  - Hypersomnia [Unknown]
  - Decreased appetite [Recovered/Resolved]
  - Musculoskeletal chest pain [Recovered/Resolved]
  - Rheumatoid arthritis [Recovered/Resolved]
  - Pain in extremity [Recovered/Resolved]
  - Mobility decreased [Recovered/Resolved]
  - Costochondritis [Unknown]
  - Pyrexia [Recovered/Resolved]
  - Illness [Unknown]
  - Macular degeneration [Not Recovered/Not Resolved]
  - Swelling [Recovered/Resolved]
  - Back pain [Recovered/Resolved]
  - Nausea [Recovering/Resolving]

NARRATIVE: CASE EVENT DATE: 202101
